FAERS Safety Report 8805575 (Version 2)
Quarter: 2015Q2

REPORT INFORMATION
  Report Type: Report from Study
  Country: US (occurrence: US)
  Receive Date: 20120924
  Receipt Date: 20150409
  Transmission Date: 20150821
  Serious: Yes (Death)
  Sender: FDA-Public Use
  Company Number: US-ROCHE-1129327

PATIENT
  Age: 44 Year
  Sex: Female
  Weight: 103.06 kg

DRUGS (17)
  1. ACETAMINOPHEN. [Concomitant]
     Active Substance: ACETAMINOPHEN
     Route: 048
  2. DYAZIDE [Concomitant]
     Active Substance: HYDROCHLOROTHIAZIDE\TRIAMTERENE
  3. IXEMPRA [Concomitant]
     Active Substance: IXABEPILONE
  4. PRILOSEC [Concomitant]
     Active Substance: OMEPRAZOLE MAGNESIUM
  5. AVASTIN [Suspect]
     Active Substance: BEVACIZUMAB
     Indication: BREAST CANCER FEMALE
     Dosage: ON 25/FEB/2009, ALSO SHE RECEIVED 1008 MG.
     Route: 042
     Dates: start: 20081119
  6. DEXAMETHASONE. [Concomitant]
     Active Substance: DEXAMETHASONE
     Route: 042
  7. PALONOSETRON HYDROCHLORIDE [Concomitant]
     Active Substance: PALONOSETRON HYDROCHLORIDE
     Route: 042
  8. AVASTIN [Suspect]
     Active Substance: BEVACIZUMAB
     Route: 042
  9. LORATADINE. [Concomitant]
     Active Substance: LORATADINE
     Route: 048
  10. CIMETIDINE HCL [Concomitant]
     Route: 042
  11. ZOLOFT [Concomitant]
     Active Substance: SERTRALINE HYDROCHLORIDE
     Route: 065
  12. AVASTIN [Suspect]
     Active Substance: BEVACIZUMAB
     Dosage: ON 13/MAR/2009, SHE RECEIVED 1016 MG.
     Route: 042
  13. PACLITAXEL. [Concomitant]
     Active Substance: PACLITAXEL
     Route: 042
  14. GEMZAR [Concomitant]
     Active Substance: GEMCITABINE HYDROCHLORIDE
     Route: 042
  15. LYRICA [Concomitant]
     Active Substance: PREGABALIN
     Route: 065
  16. REGLAN [Concomitant]
     Active Substance: METOCLOPRAMIDE HYDROCHLORIDE
  17. ARANESP [Concomitant]
     Active Substance: DARBEPOETIN ALFA

REACTIONS (27)
  - Throat irritation [Unknown]
  - Varices oesophageal [Unknown]
  - Nausea [Unknown]
  - Ascites [Unknown]
  - Constipation [Unknown]
  - Discomfort [Unknown]
  - Abdominal pain upper [Unknown]
  - Decreased appetite [Unknown]
  - Oedema peripheral [Unknown]
  - Death [Fatal]
  - Disease progression [Unknown]
  - Weight decreased [Unknown]
  - Neutropenia [Unknown]
  - Mouth ulceration [Unknown]
  - Abdominal discomfort [Unknown]
  - Waist circumference increased [Unknown]
  - Jaundice [Unknown]
  - Hepatic failure [Unknown]
  - Fatigue [Unknown]
  - Haemorrhoids [Unknown]
  - Upper respiratory tract infection [Recovered/Resolved]
  - Gastrointestinal haemorrhage [Unknown]
  - Abdominal pain [Unknown]
  - Thrombocytopenia [Unknown]
  - Anaemia [Unknown]
  - Amnesia [Unknown]
  - Malaise [Unknown]

NARRATIVE: CASE EVENT DATE: 20090608
